FAERS Safety Report 13843915 (Version 1)
Quarter: 2017Q3

REPORT INFORMATION
  Report Type: Spontaneous
  Country: FR (occurrence: FR)
  Receive Date: 20170808
  Receipt Date: 20170808
  Transmission Date: 20171127
  Serious: Yes (Hospitalization)
  Sender: FDA-Public Use
  Company Number: FR-PFIZER INC-2017335313

PATIENT
  Age: 66 Year
  Sex: Male

DRUGS (3)
  1. FLUOROURACILE ACCORD [Suspect]
     Active Substance: FLUOROURACIL
     Indication: HYPOPHARYNGEAL CANCER STAGE IV
     Dosage: 3000 (UNITS UNKNOWN)
     Route: 042
     Dates: start: 20170509, end: 20170511
  2. DOCETAXEL. [Suspect]
     Active Substance: DOCETAXEL
     Indication: HYPOPHARYNGEAL CANCER STAGE IV
     Dosage: 140 MG, UNK
     Route: 042
     Dates: start: 20170510, end: 20170510
  3. CARBOPLATINE HOSPIRA [Suspect]
     Active Substance: CARBOPLATIN
     Indication: HYPOPHARYNGEAL CANCER STAGE IV
     Dosage: 800 MG, CYCLIC
     Route: 042
     Dates: start: 20170511, end: 20170511

REACTIONS (4)
  - Weight decreased [Recovered/Resolved]
  - Dysphagia [Recovered/Resolved]
  - Diarrhoea [Recovered/Resolved]
  - Oral fungal infection [Recovered/Resolved]

NARRATIVE: CASE EVENT DATE: 201705
